FAERS Safety Report 9455536 (Version 3)
Quarter: 2013Q3

REPORT INFORMATION
  Report Type: Spontaneous
  Country: GB (occurrence: GB)
  Receive Date: 20130813
  Receipt Date: 20130916
  Transmission Date: 20140515
  Serious: Yes (Death, Hospitalization)
  Sender: FDA-Public Use
  Company Number: GB-PFIZER INC-2013232683

PATIENT
  Age: 73 Year
  Sex: Female

DRUGS (5)
  1. CYCLOPHOSPHAMIDE [Suspect]
     Dosage: UNK
  2. DOXORUBICIN [Suspect]
     Dosage: LIPOSOME
     Route: 042
  3. RITUXIMAB [Suspect]
     Dosage: UNK
  4. VINCRISTINE [Suspect]
     Dosage: UNK
  5. PREDNISOLONE [Suspect]
     Dosage: UNK

REACTIONS (2)
  - Neutropenic sepsis [Fatal]
  - Cardiac arrest [Recovered/Resolved]
